FAERS Safety Report 17524099 (Version 1)
Quarter: 2020Q1

REPORT INFORMATION
  Report Type: Report from Study
  Country: IE (occurrence: IE)
  Receive Date: 20200310
  Receipt Date: 20200310
  Transmission Date: 20200409
  Serious: Yes (Other)
  Sender: FDA-Public Use
  Company Number: NVSC2020IE007552

PATIENT
  Age: 61 Year
  Sex: Female

DRUGS (4)
  1. MEKINIST [Suspect]
     Active Substance: TRAMETINIB DIMETHYL SULFOXIDE
     Indication: MALIGNANT MELANOMA
     Dosage: 2 MG, QD
     Route: 065
     Dates: end: 20200101
  2. TAFINLAR [Suspect]
     Active Substance: DABRAFENIB MESYLATE
     Dosage: 150 MG, QD (DAILY)
     Route: 065
     Dates: start: 20200110
  3. MEKINIST [Suspect]
     Active Substance: TRAMETINIB DIMETHYL SULFOXIDE
     Dosage: 2 MG, QD
     Route: 065
     Dates: start: 20200110
  4. TAFINLAR [Suspect]
     Active Substance: DABRAFENIB MESYLATE
     Indication: MALIGNANT MELANOMA
     Dosage: 150 MG, QD (DAILY)
     Route: 065
     Dates: end: 20200101

REACTIONS (3)
  - Malaise [Not Recovered/Not Resolved]
  - Influenza [Recovered/Resolved]
  - Lower respiratory tract infection [Unknown]

NARRATIVE: CASE EVENT DATE: 20200101
